FAERS Safety Report 23610507 (Version 5)
Quarter: 2024Q4

REPORT INFORMATION
  Report Type: Spontaneous
  Country: US (occurrence: US)
  Receive Date: 20240308
  Receipt Date: 20241119
  Transmission Date: 20250114
  Serious: No
  Sender: BIOGEN
  Company Number: US-BIOGEN-2024BI01252034

PATIENT
  Sex: Female

DRUGS (3)
  1. TYSABRI [Suspect]
     Active Substance: NATALIZUMAB
     Indication: Multiple sclerosis
     Route: 050
     Dates: start: 20081105
  2. TYSABRI [Suspect]
     Active Substance: NATALIZUMAB
     Route: 050
  3. BOTOX [Concomitant]
     Active Substance: ONABOTULINUMTOXINA
     Route: 050

REACTIONS (8)
  - Prescribed underdose [Not Recovered/Not Resolved]
  - Visual impairment [Unknown]
  - Hypoaesthesia [Unknown]
  - Bone contusion [Unknown]
  - Asthenia [Unknown]
  - Discomfort [Unknown]
  - Chest pain [Unknown]
  - Fall [Recovered/Resolved]
